FAERS Safety Report 4557414-9 (Version None)
Quarter: 2005Q1

REPORT INFORMATION
  Report Type: 
  Country: None (occurrence: None)
  Receive Date: 20050120
  Receipt Date: 20041214
  Transmission Date: 20050727
  Serious: Yes (Life-Threatening, Hospitalization)
  Sender: FDA-Public Use
  Company Number: FR-ABBOTT-04P-056-0283719-00

PATIENT
  Age: 49 Year
  Sex: Female

DRUGS (3)
  1. DEPAKOTE [Suspect]
     Indication: SUICIDE ATTEMPT
     Route: 048
     Dates: start: 20041019, end: 20041019
  2. PARACETAMOL [Suspect]
     Indication: SUICIDE ATTEMPT
     Route: 048
     Dates: start: 20041019, end: 20041019
  3. FLUINDIONE [Suspect]
     Indication: SUICIDE ATTEMPT
     Route: 048
     Dates: start: 20041019, end: 20041019

REACTIONS (11)
  - CYTOLYTIC HEPATITIS [None]
  - DRUG LEVEL DECREASED [None]
  - ENCEPHALOPATHY [None]
  - HAEMATEMESIS [None]
  - HEPATIC FAILURE [None]
  - HEPATITIS [None]
  - INTENTIONAL MISUSE [None]
  - LIPASE INCREASED [None]
  - PROTHROMBIN TIME RATIO DECREASED [None]
  - SOMNOLENCE [None]
  - SUICIDE ATTEMPT [None]
